FAERS Safety Report 16109205 (Version 1)
Quarter: 2019Q1

REPORT INFORMATION
  Report Type: Spontaneous
  Country: AM (occurrence: AM)
  Receive Date: 20190323
  Receipt Date: 20190323
  Transmission Date: 20190418
  Serious: Yes (Other)
  Sender: FDA-Public Use
  Company Number: PHHY2018AM201640

PATIENT
  Age: 56 Year
  Sex: Male

DRUGS (15)
  1. CLOFAZIMINE [Suspect]
     Active Substance: CLOFAZIMINE
     Indication: PULMONARY TUBERCULOSIS
     Dosage: 300 OT, QD(200/100)
     Route: 065
     Dates: start: 20170223, end: 20170511
  2. TINIDAZOLE. [Concomitant]
     Active Substance: TINIDAZOLE
     Indication: PRODUCT USED FOR UNKNOWN INDICATION
     Dosage: UNK
     Route: 065
     Dates: start: 20160906, end: 20180202
  3. MOXIFLOXACIN. [Suspect]
     Active Substance: MOXIFLOXACIN
     Indication: PULMONARY TUBERCULOSIS
     Dosage: 400 OT, QD
     Route: 065
     Dates: start: 20170223, end: 20170511
  4. DELAMANID [Suspect]
     Active Substance: DELAMANID
     Indication: PULMONARY TUBERCULOSIS
     Dosage: 200 OT, QD
     Route: 065
     Dates: start: 20170223, end: 20170329
  5. VITAMIN B6 [Concomitant]
     Active Substance: PYRIDOXINE HYDROCHLORIDE
     Indication: PRODUCT USED FOR UNKNOWN INDICATION
     Dosage: UNK
     Route: 065
  6. LINEZOLID. [Suspect]
     Active Substance: LINEZOLID
     Dosage: 600 OT, QD
     Route: 065
     Dates: start: 20170706, end: 20180202
  7. CLOFAZIMINE [Suspect]
     Active Substance: CLOFAZIMINE
     Dosage: 300 OT, QD(200/100)
     Route: 065
     Dates: start: 20170708, end: 20180202
  8. CYCLOSERINE. [Suspect]
     Active Substance: CYCLOSERINE
     Indication: PULMONARY TUBERCULOSIS
     Dosage: 750 OT, QD
     Route: 065
     Dates: start: 20160819, end: 20170214
  9. EFAVIRENZ. [Concomitant]
     Active Substance: EFAVIRENZ
     Indication: PRODUCT USED FOR UNKNOWN INDICATION
     Dosage: UNK
     Route: 065
     Dates: start: 20160906, end: 20180202
  10. CYCLOSERINE. [Suspect]
     Active Substance: CYCLOSERINE
     Dosage: 750 OT, QD
     Route: 065
     Dates: start: 20170717, end: 20180202
  11. EMTRICITABINE [Concomitant]
     Active Substance: EMTRICITABINE
     Indication: PRODUCT USED FOR UNKNOWN INDICATION
     Dosage: UNK
     Route: 065
     Dates: start: 20160906, end: 20180202
  12. MOXIFLOXACIN. [Suspect]
     Active Substance: MOXIFLOXACIN
     Dosage: 400 OT, QD
     Route: 065
     Dates: start: 20170712, end: 20180202
  13. DELAMANID [Suspect]
     Active Substance: DELAMANID
     Dosage: 200 OT, QD
     Route: 065
     Dates: start: 20170717, end: 20171204
  14. LINEZOLID. [Suspect]
     Active Substance: LINEZOLID
     Indication: PULMONARY TUBERCULOSIS
     Dosage: 600 OT, QD
     Route: 065
     Dates: start: 20170223, end: 20170515
  15. DILOXANIDE [Concomitant]
     Indication: PRODUCT USED FOR UNKNOWN INDICATION
     Dosage: UNK
     Route: 065
     Dates: start: 20160906, end: 20180202

REACTIONS (3)
  - Hypersensitivity [Not Recovered/Not Resolved]
  - Anxiety [Not Recovered/Not Resolved]
  - Acute kidney injury [Not Recovered/Not Resolved]

NARRATIVE: CASE EVENT DATE: 20180202
